FAERS Safety Report 17105575 (Version 1)
Quarter: 2019Q4

REPORT INFORMATION
  Report Type: Spontaneous
  Country: RU (occurrence: RU)
  Receive Date: 20191203
  Receipt Date: 20191203
  Transmission Date: 20200122
  Serious: Yes (Hospitalization)
  Sender: FDA-Public Use
  Company Number: RU-PFIZER INC-2019338143

PATIENT
  Age: 35 Year
  Sex: Female

DRUGS (1)
  1. CELEBREX [Suspect]
     Active Substance: CELECOXIB
     Indication: BACK PAIN
     Dosage: 200 MG, SINGLE
     Dates: start: 20190611, end: 20190611

REACTIONS (5)
  - Abdominal pain [Recovered/Resolved]
  - Poor quality product administered [Unknown]
  - Angioedema [Recovered/Resolved]
  - Suspected counterfeit product [Unknown]
  - Anaphylactoid reaction [Recovered/Resolved]

NARRATIVE: CASE EVENT DATE: 20190611
